FAERS Safety Report 11242625 (Version 1)
Quarter: 2015Q3

REPORT INFORMATION
  Report Type: Report from Study
  Country: AU (occurrence: AU)
  Receive Date: 20150707
  Receipt Date: 20150707
  Transmission Date: 20151125
  Serious: Yes (Death)
  Sender: FDA-Public Use
  Company Number: AU-ROCHE-1598116

PATIENT
  Age: 80 Year
  Sex: Female

DRUGS (7)
  1. ALBUTEROL. [Concomitant]
     Active Substance: ALBUTEROL
  2. SERETIDE [Concomitant]
     Active Substance: FLUTICASONE FUROATE\SALMETEROL XINAFOATE
  3. RANIBIZUMAB [Suspect]
     Active Substance: RANIBIZUMAB
     Indication: CHOROIDAL NEOVASCULARISATION
     Dosage: 0.5 MG IN 0.05 ML (RIGHT EYE). THE LAST RANIBIZUMAB INJECTION WAS ON 08/DEC/2014
     Route: 050
     Dates: start: 20080527
  4. ALPHAGEN [Concomitant]
  5. ATORVASTATIN [Concomitant]
     Active Substance: ATORVASTATIN
  6. TERBUTALINE SULFATE. [Concomitant]
     Active Substance: TERBUTALINE SULFATE
  7. DIAZEPAM. [Concomitant]
     Active Substance: DIAZEPAM
     Route: 065

REACTIONS (1)
  - Death [Fatal]

NARRATIVE: CASE EVENT DATE: 20150102
